FAERS Safety Report 5604078-9 (Version None)
Quarter: 2008Q1

REPORT INFORMATION
  Report Type: 
  Country: None (occurrence: None)
  Receive Date: 20080123
  Receipt Date: 20080123
  Transmission Date: 20080703
  Serious: No
  Sender: FDA-Public Use
  Company Number: None

PATIENT
  Age: 56 Year
  Sex: Female
  Weight: 48.5349 kg

DRUGS (1)
  1. BONIVA [Suspect]
     Indication: OSTEOPOROSIS
     Dosage: 1 PILL  ONCE A MONTH  PO
     Route: 048
     Dates: start: 20071111, end: 20080101

REACTIONS (2)
  - ARTHRALGIA [None]
  - WEIGHT BEARING DIFFICULTY [None]
